FAERS Safety Report 12529823 (Version 1)
Quarter: 2016Q3

REPORT INFORMATION
  Report Type: Spontaneous
  Country: US (occurrence: None)
  Receive Date: 20160705
  Receipt Date: 20160705
  Transmission Date: 20161109
  Serious: Yes (Hospitalization)
  Sender: FDA-Public Use
  Company Number: None

PATIENT
  Age: 23 Year
  Sex: Female
  Weight: 42 kg

DRUGS (2)
  1. CENTRUM MULTIVITAMIN [Concomitant]
  2. PANADOL [Suspect]
     Active Substance: ACETAMINOPHEN
     Indication: HEADACHE
     Route: 048
     Dates: start: 20160630

REACTIONS (5)
  - Dizziness [None]
  - Dyspnoea [None]
  - Chest pain [None]
  - Hypoaesthesia [None]
  - Rash [None]

NARRATIVE: CASE EVENT DATE: 20160630
